FAERS Safety Report 8559739-9 (Version None)
Quarter: 2012Q3

REPORT INFORMATION
  Report Type: 
  Country: None (occurrence: None)
  Receive Date: 20120802
  Receipt Date: 20120726
  Transmission Date: 20120928
  Serious: Yes (Hospitalization)
  Sender: FDA-Public Use
  Company Number: FR-PFIZER INC-2012180824

PATIENT
  Age: 54 Year
  Sex: Male

DRUGS (2)
  1. IBUPROFEN [Suspect]
     Indication: PAIN IN JAW
     Dosage: UNK
     Route: 048
     Dates: start: 20120710, end: 20120710
  2. ACETAMINOPHEN [Suspect]
     Indication: PAIN IN JAW
     Dosage: 1000 MG, SINGLE
     Route: 048
     Dates: start: 20120710, end: 20120710

REACTIONS (2)
  - ANGIOEDEMA [None]
  - ANAPHYLACTIC SHOCK [None]
